FAERS Safety Report 16983708 (Version 2)
Quarter: 2020Q1

REPORT INFORMATION
  Report Type: Spontaneous
  Country: ES (occurrence: ES)
  Receive Date: 20191101
  Receipt Date: 20200123
  Transmission Date: 20200409
  Serious: Yes (Death, Other)
  Sender: FDA-Public Use
  Company Number: ES-SHIRE-ES201936724

PATIENT

DRUGS (7)
  1. PAZOPANIB [Concomitant]
     Active Substance: PAZOPANIB
     Indication: PRODUCT USED FOR UNKNOWN INDICATION
  2. INTERFERON;RIBAVIRIN [Concomitant]
     Indication: HEPATITIS C
  3. ADVATE [Suspect]
     Active Substance: ANTIHEMOPHILIC FACTOR, HUMAN RECOMBINANT
     Indication: PROPHYLAXIS
     Dosage: UNK
     Route: 065
     Dates: start: 20171127
  4. AXITINIB [Concomitant]
     Active Substance: AXITINIB
     Indication: PRODUCT USED FOR UNKNOWN INDICATION
  5. ADVATE [Suspect]
     Active Substance: ANTIHEMOPHILIC FACTOR, HUMAN RECOMBINANT
     Indication: FACTOR VIII DEFICIENCY
  6. CABOZANTINIB [Concomitant]
     Active Substance: CABOZANTINIB
     Indication: PRODUCT USED FOR UNKNOWN INDICATION
  7. PEGYLATED CF VIII (RECOMBINANT) [Concomitant]
     Active Substance: ANTIHEMOPHILIC FACTOR, PEGYLATED (MW 20000) HUMAN SEQUENCE RECOMBINANT
     Indication: HAEMARTHROSIS

REACTIONS (9)
  - Haematoma [Unknown]
  - Pathological fracture [Unknown]
  - Bone lesion [Unknown]
  - Metastases to central nervous system [Fatal]
  - Metastasis [Unknown]
  - Mass [Unknown]
  - Haemorrhagic stroke [Fatal]
  - Intracranial mass [Unknown]
  - Intraventricular haemorrhage [Unknown]

NARRATIVE: CASE EVENT DATE: 20190131
